FAERS Safety Report 6241540-2 (Version None)
Quarter: 2009Q2

REPORT INFORMATION
  Report Type: 
  Country: None (occurrence: None)
  Receive Date: 20090623
  Receipt Date: 20040402
  Transmission Date: 20091009
  Serious: Yes (Hospitalization)
  Sender: FDA-Public Use
  Company Number: DE-ROCHE-354488

PATIENT
  Sex: Female
  Weight: 51.8 kg

DRUGS (20)
  1. DACLIZUMAB [Suspect]
     Route: 042
     Dates: start: 20031129
  2. DACLIZUMAB [Suspect]
     Route: 042
     Dates: start: 20031212
  3. MYCOPHENOLATE MOFETIL [Suspect]
     Dosage: DRUG: MYCOPHENOLAT MOFETIL
     Route: 048
     Dates: start: 20031129, end: 20031130
  4. MYCOPHENOLATE MOFETIL [Suspect]
     Route: 048
     Dates: start: 20031201, end: 20031201
  5. MYCOPHENOLATE MOFETIL [Suspect]
     Route: 048
     Dates: start: 20031202
  6. SIROLIMUS [Suspect]
     Dosage: DRUG: RAPAMUNE
     Route: 048
     Dates: start: 20031129
  7. METHYLPREDNISOLONE [Suspect]
     Route: 042
     Dates: start: 20031129, end: 20031202
  8. METHYLPREDNISOLONE [Suspect]
     Route: 048
     Dates: start: 20031203
  9. VESDIL [Concomitant]
     Route: 048
     Dates: start: 20031202
  10. BELOC-ZOK [Concomitant]
     Route: 048
     Dates: start: 20031203
  11. NORVASC [Concomitant]
     Route: 048
     Dates: start: 20031202
  12. CYNT [Concomitant]
     Dosage: CYNT 0.2.
     Route: 048
     Dates: start: 20031206
  13. PRAVASTATIN SODIUM [Concomitant]
     Route: 048
     Dates: start: 20031201
  14. CYMEVEN [Concomitant]
     Route: 048
     Dates: start: 20031201, end: 20031202
  15. CYMEVEN [Concomitant]
     Route: 048
     Dates: start: 20031203
  16. COTRIM [Concomitant]
  17. CARVEDILOL [Concomitant]
     Route: 048
     Dates: start: 20031130, end: 20031202
  18. CEFAZOLIN [Concomitant]
     Route: 042
     Dates: start: 20031130
  19. DARBEPOETIN ALFA [Concomitant]
     Route: 058
     Dates: start: 20031208
  20. DIGITOXIN [Concomitant]
     Route: 048
     Dates: start: 20031202, end: 20031208

REACTIONS (1)
  - LYMPHOCELE [None]
